FAERS Safety Report 8883691 (Version 1)
Quarter: 2012Q4

REPORT INFORMATION
  Report Type: 
  Country: US (occurrence: US)
  Receive Date: 20121102
  Receipt Date: 20121102
  Transmission Date: 20130627
  Serious: No
  Sender: FDA-Public Use
  Company Number: US-GLAXOSMITHKLINE-A0986359A

PATIENT
  Age: 54 Year
  Sex: Female

DRUGS (2)
  1. HORIZANT [Suspect]
     Indication: RESTLESS LEGS SYNDROME
     Dosage: 600MG Single dose
     Route: 048
     Dates: start: 20120707, end: 20120707
  2. SYNTHROID [Concomitant]

REACTIONS (1)
  - Tachycardia [Recovered/Resolved]
